FAERS Safety Report 8575469-1 (Version None)
Quarter: 2012Q3

REPORT INFORMATION
  Report Type: 
  Country: None (occurrence: None)
  Receive Date: 20120807
  Receipt Date: 20120731
  Transmission Date: 20120928
  Serious: Yes (Other)
  Sender: FDA-Public Use
  Company Number: PHHY2012MX067565

PATIENT
  Sex: Female

DRUGS (2)
  1. ZOLEDRONOC ACID [Suspect]
     Indication: OSTEOPOROSIS
     Dosage: 5 MG/100 ML, PER YEAR
     Route: 042
  2. CALCIUM [Concomitant]
     Dosage: 1 DF, QD
     Dates: start: 20110101

REACTIONS (1)
  - CLAVICLE FRACTURE [None]
